FAERS Safety Report 7215005-5 (Version None)
Quarter: 2011Q1

REPORT INFORMATION
  Report Type: 
  Country: None (occurrence: None)
  Receive Date: 20110107
  Receipt Date: 20100706
  Transmission Date: 20110831
  Serious: No
  Sender: FDA-Public Use
  Company Number: A0868677A

PATIENT
  Age: 64 Year
  Sex: Female

DRUGS (6)
  1. LOVAZA [Suspect]
     Dosage: 2G TWICE PER DAY
     Route: 048
     Dates: start: 20090101, end: 20100601
  2. BLOOD PRESSURE MEDICATION [Concomitant]
  3. ESTROGEN CREAM [Concomitant]
  4. MULTIVITAMIN [Concomitant]
  5. ALOE [Concomitant]
  6. NEBIVOLOL [Concomitant]

REACTIONS (2)
  - DYSPEPSIA [None]
  - ABDOMINAL PAIN UPPER [None]
